FAERS Safety Report 18541781 (Version 1)
Quarter: 2020Q4

REPORT INFORMATION
  Report Type: Report from Study
  Country: CA (occurrence: CA)
  Receive Date: 20201125
  Receipt Date: 20201125
  Transmission Date: 20210114
  Serious: Yes (Other)
  Sender: FDA-Public Use
  Company Number: CA-JNJFOC-20201127119

PATIENT
  Age: 42 Year
  Sex: Female
  Weight: 51 kg

DRUGS (2)
  1. STELARA [Suspect]
     Active Substance: USTEKINUMAB
     Indication: CROHN^S DISEASE
     Route: 058
     Dates: start: 20180129
  2. MONOFERRIC [IRON ISOMALTOSIDE 1000] [Suspect]
     Active Substance: IRON ISOMALTOSIDE 1000
     Indication: BLOOD IRON DECREASED
     Route: 065

REACTIONS (2)
  - Blood iron decreased [Unknown]
  - Headache [Unknown]

NARRATIVE: CASE EVENT DATE: 20201106
